FAERS Safety Report 5568508-3 (Version None)
Quarter: 2007Q4

REPORT INFORMATION
  Report Type: 
  Country: None (occurrence: None)
  Receive Date: 20071220
  Receipt Date: 20071212
  Transmission Date: 20080405
  Serious: Yes (Other)
  Sender: FDA-Public Use
  Company Number: BG-ROCHE-536921

PATIENT
  Age: 45 Year
  Sex: Female
  Weight: 58 kg

DRUGS (3)
  1. BONIVA [Suspect]
     Indication: OSTEOPOROSIS
     Dosage: STRENGTH: 3 MG/3ML. DOSAGE REGIMEN: EVERY 3 MONTHS. FORM: SOLUTION INJECTION.
     Route: 042
     Dates: start: 20071129
  2. NOOTROPIL [Concomitant]
     Dosage: STRENGTH: 12 G/60ML. DOSAGE REGIMEN: BOLUS X 1.
     Route: 042
     Dates: start: 20071129, end: 20071129
  3. CALCIUM/VITAMIN D3 [Concomitant]
     Indication: OSTEOPOROSIS PROPHYLAXIS
     Dosage: STRENGTH: CALCIUM + VITAMIN D3: 400 MG+5 MCG
     Route: 048
     Dates: start: 20071119

REACTIONS (6)
  - BRADYCARDIA [None]
  - FACE OEDEMA [None]
  - HEADACHE [None]
  - HYPOTONIA [None]
  - MUSCULOSKELETAL PAIN [None]
  - OEDEMA PERIPHERAL [None]
